FAERS Safety Report 11025292 (Version 1)
Quarter: 2015Q2

REPORT INFORMATION
  Report Type: Spontaneous
  Country: US (occurrence: None)
  Receive Date: 20150413
  Receipt Date: 20150413
  Transmission Date: 20150821
  Serious: No
  Sender: FDA-Public Use
  Company Number: None

PATIENT

DRUGS (2)
  1. VAZCULEP [Suspect]
     Active Substance: PHENYLEPHRINE HYDROCHLORIDE
     Dosage: DOSAGE FORM: INJECTABLE
     Route: 042
  2. BLOXIVERZ [Suspect]
     Active Substance: NEOSTIGMINE METHYLSULFATE
     Dosage: DOSAGE FORM: INJECTABLE
     Route: 042

REACTIONS (3)
  - Circumstance or information capable of leading to device use error [None]
  - Product label issue [None]
  - Product packaging confusion [None]
